FAERS Safety Report 14338107 (Version 1)
Quarter: 2017Q4

REPORT INFORMATION
  Report Type: Spontaneous
  Country: US (occurrence: US)
  Receive Date: 20171229
  Receipt Date: 20171229
  Transmission Date: 20180321
  Serious: Yes (Hospitalization)
  Sender: FDA-Public Use
  Company Number: US-JNJFOC-20171234076

PATIENT
  Sex: Female
  Weight: 108.86 kg

DRUGS (1)
  1. FENTANYL TRANSDERMAL SYSTEM [Suspect]
     Active Substance: FENTANYL
     Indication: PAIN
     Route: 062
     Dates: start: 201705

REACTIONS (7)
  - Pain [Not Recovered/Not Resolved]
  - Cardiac disorder [Recovered/Resolved]
  - Weight decreased [Not Recovered/Not Resolved]
  - Myocardial infarction [Recovered/Resolved]
  - Insomnia [Not Recovered/Not Resolved]
  - Septic shock [Recovered/Resolved]
  - Musculoskeletal discomfort [Not Recovered/Not Resolved]

NARRATIVE: CASE EVENT DATE: 2017
